FAERS Safety Report 8056691-X (Version None)
Quarter: 2012Q1

REPORT INFORMATION
  Report Type: 
  Country: None (occurrence: None)
  Receive Date: 20120119
  Receipt Date: 20120110
  Transmission Date: 20120608
  Serious: Yes (Hospitalization)
  Sender: FDA-Public Use
  Company Number: US-JNJFOC-20110509788

PATIENT
  Age: 44 Year
  Sex: Female
  Weight: 53 kg

DRUGS (4)
  1. TYLENOL PM [Suspect]
     Indication: PRODUCT USED FOR UNKNOWN INDICATION
  2. NORTRIPTYLINE HCL [Suspect]
     Indication: PRODUCT USED FOR UNKNOWN INDICATION
  3. PHENTERMINE [Suspect]
     Indication: PRODUCT USED FOR UNKNOWN INDICATION
  4. NAPROXEN [Suspect]
     Indication: PRODUCT USED FOR UNKNOWN INDICATION

REACTIONS (4)
  - MULTIPLE DRUG OVERDOSE [None]
  - VOMITING [None]
  - NAUSEA [None]
  - SUICIDE ATTEMPT [None]
